FAERS Safety Report 7276326-3 (Version None)
Quarter: 2011Q1

REPORT INFORMATION
  Report Type: 
  Country: None (occurrence: None)
  Receive Date: 20110204
  Receipt Date: 20110202
  Transmission Date: 20110831
  Serious: Yes (Hospitalization)
  Sender: FDA-Public Use
  Company Number: FR-ABBOTT-11P-056-0702464-00

PATIENT
  Age: 80 Year
  Sex: Female

DRUGS (1)
  1. DEPAKENE [Suspect]
     Indication: EPILEPSY
     Dosage: DAILY DOSE: 400MG
     Route: 048

REACTIONS (3)
  - DRUG LEVEL BELOW THERAPEUTIC [None]
  - DRUG DOSE OMISSION [None]
  - CONVULSION [None]
